FAERS Safety Report 9500572 (Version 1)
Quarter: 2013Q3

REPORT INFORMATION
  Report Type: Spontaneous
  Country: US (occurrence: US)
  Receive Date: 20130905
  Receipt Date: 20130905
  Transmission Date: 20140515
  Serious: Yes (Hospitalization)
  Sender: FDA-Public Use
  Company Number: US-JNJFOC-20130900064

PATIENT
  Age: 79 Year
  Sex: Male

DRUGS (18)
  1. XARELTO [Suspect]
     Indication: CEREBROVASCULAR ACCIDENT PROPHYLAXIS
     Route: 065
     Dates: start: 20130819, end: 20130829
  2. XARELTO [Suspect]
     Indication: ATRIAL FIBRILLATION
     Route: 065
     Dates: start: 20130819, end: 20130829
  3. AMIODARONE [Concomitant]
     Route: 065
  4. ASPIRIN [Concomitant]
     Route: 065
  5. VITAMIN B12 [Concomitant]
     Route: 065
  6. VITAMIN D [Concomitant]
     Route: 065
  7. LASIX [Concomitant]
     Route: 065
  8. AMARYL [Concomitant]
     Route: 065
  9. PLAQUENIL [Concomitant]
     Route: 065
  10. LIDOCAINE PATCH [Concomitant]
     Route: 065
  11. LOSARTAN [Concomitant]
     Route: 065
  12. TOPROL [Concomitant]
     Route: 065
  13. LOVAZA [Concomitant]
     Route: 065
  14. PROTONIX [Concomitant]
     Route: 065
  15. ZOLOFT [Concomitant]
     Route: 065
  16. ALDACTONE [Concomitant]
     Route: 065
  17. HYTRIN [Concomitant]
     Route: 065
  18. MIRABEGRON [Concomitant]
     Route: 065

REACTIONS (1)
  - Thrombotic thrombocytopenic purpura [Recovering/Resolving]
